FAERS Safety Report 13718227 (Version 3)
Quarter: 2018Q1

REPORT INFORMATION
  Report Type: Spontaneous
  Country: IT (occurrence: IT)
  Receive Date: 20170705
  Receipt Date: 20180228
  Transmission Date: 20180508
  Serious: Yes (Hospitalization, Other)
  Sender: FDA-Public Use
  Company Number: IT-JNJFOC-20170628140

PATIENT
  Age: 39 Year
  Sex: Female

DRUGS (4)
  1. ZARELIS [Suspect]
     Active Substance: VENLAFAXINE HYDROCHLORIDE
     Indication: PRODUCT USED FOR UNKNOWN INDICATION
     Dosage: 14 TABLETS OF 150 MG
     Route: 048
     Dates: start: 20170629, end: 20170629
  2. LORAZEPAM. [Suspect]
     Active Substance: LORAZEPAM
     Indication: PRODUCT USED FOR UNKNOWN INDICATION
     Dosage: 10 TABLETS OF 1MG
     Route: 048
     Dates: start: 20170629, end: 20170629
  3. LEXOTAN [Suspect]
     Active Substance: BROMAZEPAM
     Indication: PRODUCT USED FOR UNKNOWN INDICATION
     Dosage: UNSPECIFIED QUANTITY
     Route: 048
     Dates: start: 20170629, end: 20170629
  4. TOPAMAX [Suspect]
     Active Substance: TOPIRAMATE
     Indication: PRODUCT USED FOR UNKNOWN INDICATION
     Dosage: 60 TABLETS OF 100MG
     Route: 048
     Dates: start: 20170629, end: 20170629

REACTIONS (5)
  - Intentional self-injury [Unknown]
  - Drug abuse [Recovering/Resolving]
  - Sluggishness [Unknown]
  - Intentional overdose [Recovering/Resolving]
  - Extrapyramidal disorder [Recovering/Resolving]

NARRATIVE: CASE EVENT DATE: 20170629
